FAERS Safety Report 24117723 (Version 1)
Quarter: 2024Q3

REPORT INFORMATION
  Report Type: Spontaneous
  Country: US (occurrence: US)
  Receive Date: 20240722
  Receipt Date: 20240722
  Transmission Date: 20241016
  Serious: No
  Sender: SANOFI AVENTIS
  Company Number: US-SA-SAC20240716000552

PATIENT
  Sex: Female

DRUGS (14)
  1. DUPIXENT [Suspect]
     Active Substance: DUPILUMAB
     Indication: Eosinophilic oesophagitis
     Dosage: 200 MG, QOW
     Route: 058
     Dates: start: 20230627
  2. CLONIDINE [Concomitant]
     Active Substance: CLONIDINE
  3. EPINEPHRINE [Concomitant]
     Active Substance: EPINEPHRINE
  4. EPINEPHRINE [Concomitant]
     Active Substance: EPINEPHRINE
  5. FLOVENT HFA [Concomitant]
     Active Substance: FLUTICASONE PROPIONATE
  6. IBUPROFEN [Concomitant]
     Active Substance: IBUPROFEN
  7. LORATADINE [Concomitant]
     Active Substance: LORATADINE
  8. SERTRALINE [Concomitant]
     Active Substance: SERTRALINE HYDROCHLORIDE
  9. SERTRALINE [Concomitant]
     Active Substance: SERTRALINE HYDROCHLORIDE
  10. TYLENOL [Concomitant]
     Active Substance: ACETAMINOPHEN
  11. VITAMIN D3 [Concomitant]
     Active Substance: CHOLECALCIFEROL
  12. ZOLOFT [Concomitant]
     Active Substance: SERTRALINE HYDROCHLORIDE
  13. DIPHENHYDRAMINE [Concomitant]
     Active Substance: DIPHENHYDRAMINE
  14. METHYLPHENIDATE [Concomitant]
     Active Substance: METHYLPHENIDATE

REACTIONS (4)
  - Rash erythematous [Unknown]
  - Photosensitivity reaction [Unknown]
  - Impaired quality of life [Unknown]
  - Therapeutic response decreased [Unknown]
